FAERS Safety Report 7378007-4 (Version None)
Quarter: 2011Q1

REPORT INFORMATION
  Report Type: 
  Country: None (occurrence: None)
  Receive Date: 20110328
  Receipt Date: 20110321
  Transmission Date: 20110831
  Serious: Yes (Congenital Anomaly, Other)
  Sender: FDA-Public Use
  Company Number: US-PFIZER INC-2008082789

PATIENT
  Sex: Female
  Weight: 2.7 kg

DRUGS (1)
  1. ZOLOFT [Suspect]
     Dosage: UNK

REACTIONS (12)
  - DRUG EXPOSURE DURING PREGNANCY [None]
  - STAPHYLOCOCCAL INFECTION [None]
  - COGNITIVE DISORDER [None]
  - ECTOPIA CORDIS [None]
  - CONGENITAL CARDIOVASCULAR ANOMALY [None]
  - MOTOR DYSFUNCTION [None]
  - BRONCHOMALACIA [None]
  - EXOMPHALOS [None]
  - DIAPHRAGMATIC HERNIA [None]
  - RETINOPATHY OF PREMATURITY [None]
  - TRACHEOMALACIA [None]
  - FEEDING DISORDER NEONATAL [None]
